FAERS Safety Report 6531945-4 (Version None)
Quarter: 2010Q1

REPORT INFORMATION
  Report Type: 
  Country: None (occurrence: None)
  Receive Date: 20100107
  Receipt Date: 20100107
  Transmission Date: 20100710
  Serious: Yes (Hospitalization)
  Sender: FDA-Public Use
  Company Number: None

PATIENT
  Age: 50 Year
  Sex: Female
  Weight: 46 kg

DRUGS (1)
  1. BACTRIM [Suspect]
     Indication: CELLULITIS
     Dosage: 800/160 BID PO
     Route: 048
     Dates: start: 20091125, end: 20091130

REACTIONS (2)
  - STEVENS-JOHNSON SYNDROME [None]
  - SYNCOPE [None]
